FAERS Safety Report 8051556-1 (Version None)
Quarter: 2012Q1

REPORT INFORMATION
  Report Type: 
  Country: None (occurrence: None)
  Receive Date: 20120117
  Receipt Date: 20120110
  Transmission Date: 20120608
  Serious: Yes (Hospitalization, Other)
  Sender: FDA-Public Use
  Company Number: PHEH2006US06792

PATIENT
  Sex: Female
  Weight: 65.306 kg

DRUGS (69)
  1. AREDIA [Suspect]
     Indication: METASTASES TO BONE
     Dosage: 90 MG, QMO
     Dates: start: 20001003, end: 20020219
  2. FOSAMAX [Concomitant]
     Dosage: 10 MG, QW
     Dates: start: 20020122, end: 20040219
  3. REGLAN [Concomitant]
     Indication: GASTROOESOPHAGEAL REFLUX DISEASE
     Dosage: 10MG WITH MEALS
     Route: 048
  4. DARVOCET-N 50 [Concomitant]
     Dosage: UNK, PRN
  5. PHENERGAN [Concomitant]
  6. ATARAX [Concomitant]
  7. LOVENOX [Concomitant]
  8. SPORANOX [Concomitant]
  9. LIDOCAINE HCL VISCOUS [Concomitant]
  10. AVELOX [Concomitant]
  11. ACEON [Concomitant]
  12. TAMOXIFEN CITRATE [Concomitant]
     Indication: BREAST CANCER
     Dosage: 10 MG, BID
     Route: 048
     Dates: start: 19981031, end: 20030501
  13. GLUCOSAMINE W/CHONDROITIN [Concomitant]
     Dosage: UNK, QD
     Dates: start: 20020122, end: 20030121
  14. BACTRIM [Concomitant]
  15. BETAMETHASONE VALERATE [Concomitant]
  16. TORADOL [Concomitant]
  17. NOLVADEX [Concomitant]
  18. ZOLOFT [Concomitant]
  19. PROCHLORPERAZINE [Concomitant]
  20. PROMETHAZINE HYDROCHLORIDE [Concomitant]
  21. ELIDEL [Concomitant]
  22. OXYCODONE HCL [Concomitant]
  23. ELAVIL [Concomitant]
  24. NAPROSYN [Concomitant]
  25. RELAFEN [Concomitant]
  26. SOMA [Concomitant]
  27. ZOMETA [Suspect]
     Indication: METASTASES TO BONE
     Dosage: 4 MG, QMO
     Dates: start: 20020319, end: 20031201
  28. CALCIUM [Concomitant]
     Dosage: 400 MG, QID
     Dates: start: 20000929, end: 20030121
  29. VESICARE [Concomitant]
  30. LORAZEPAM [Concomitant]
  31. FAMVIR                                  /NET/ [Concomitant]
  32. MOBIC [Concomitant]
  33. KLONOPIN [Concomitant]
  34. ZOMETA [Suspect]
     Indication: BREAST CANCER METASTATIC
  35. ATIVAN [Concomitant]
     Indication: ANXIETY
     Dosage: 1 MG BID PRN
     Route: 048
     Dates: start: 20000928
  36. NEXIUM [Concomitant]
     Indication: GASTROOESOPHAGEAL REFLUX DISEASE
     Dosage: QD PRN
     Dates: start: 20021029, end: 20040908
  37. CYPROHEPTADINE HYDROCHLORIDE [Concomitant]
  38. PENICILLIN VK [Concomitant]
  39. DESYREL [Concomitant]
  40. MEDROL [Concomitant]
  41. NEURONTIN [Concomitant]
  42. ARIMIDEX [Concomitant]
     Dosage: 1 MG, QD
     Dates: start: 20031001
  43. AROMASIN [Concomitant]
  44. ZYRTEC [Concomitant]
  45. METOCLOPRAMIDE [Concomitant]
  46. CHLORHEXIDINE GLUCONATE [Concomitant]
  47. HYDROXYZINE [Concomitant]
  48. ALPRAZOLAM [Concomitant]
  49. PREDNISONE [Concomitant]
  50. GEMCITABINE [Concomitant]
  51. VITAMIN D [Concomitant]
  52. CODEINE SUL TAB [Concomitant]
  53. DEMEROL [Concomitant]
  54. AMBIEN [Concomitant]
  55. FLEXERIL [Concomitant]
  56. SKELAXIN [Concomitant]
  57. PERCOCET [Concomitant]
  58. CYCLOBENZAPRINE [Concomitant]
  59. PAMELOR [Concomitant]
  60. ULTRAM [Concomitant]
  61. VIOXX [Concomitant]
     Indication: BONE PAIN
     Dosage: 25 MG, QD
     Dates: start: 20010220, end: 20040908
  62. CELEBREX [Concomitant]
  63. ACETAMINOPHEN AND HYDROCODONE BITARTRATE [Concomitant]
  64. CALCITONIN SALMON [Concomitant]
  65. PAXIL [Concomitant]
  66. METHADONE HCL [Concomitant]
  67. LODINE [Concomitant]
  68. ROBAXIN [Concomitant]
  69. TEGRETOL [Concomitant]

REACTIONS (73)
  - OSTEOMYELITIS [None]
  - IMPAIRED HEALING [None]
  - ANXIETY [None]
  - TOOTH DEPOSIT [None]
  - BACK PAIN [None]
  - OSTEOARTHRITIS [None]
  - LACUNAR INFARCTION [None]
  - AORTIC CALCIFICATION [None]
  - PATHOLOGICAL FRACTURE [None]
  - MALIGNANT PLEURAL EFFUSION [None]
  - GINGIVAL INFECTION [None]
  - ORAL DISCOMFORT [None]
  - EMOTIONAL DISTRESS [None]
  - TOOTHACHE [None]
  - CERVICAL SPINAL STENOSIS [None]
  - KYPHOSIS [None]
  - DYSPNOEA [None]
  - HERPES ZOSTER [None]
  - TOOTH FRACTURE [None]
  - INFLAMMATION [None]
  - PURULENT DISCHARGE [None]
  - ACTINOMYCOSIS [None]
  - TOOTH LOSS [None]
  - MYOFASCIAL PAIN SYNDROME [None]
  - METASTASES TO BONE [None]
  - NEOPLASM PROGRESSION [None]
  - CHOLECYSTITIS [None]
  - PLEURAL EFFUSION [None]
  - OEDEMA PERIPHERAL [None]
  - OSTEONECROSIS OF JAW [None]
  - PRIMARY SEQUESTRUM [None]
  - DERMATITIS [None]
  - URTICARIA [None]
  - COMPRESSION FRACTURE [None]
  - ATELECTASIS [None]
  - CHRONIC OBSTRUCTIVE PULMONARY DISEASE [None]
  - TACHYCARDIA [None]
  - PROCEDURAL PAIN [None]
  - WEIGHT DECREASED [None]
  - DYSGEUSIA [None]
  - INTERVERTEBRAL DISC PROTRUSION [None]
  - DIAPHRAGMATIC HERNIA [None]
  - HYPOKALAEMIA [None]
  - ABSCESS JAW [None]
  - HYPERPLASIA [None]
  - GINGIVAL SWELLING [None]
  - PAIN IN JAW [None]
  - RASH [None]
  - ASPIRATION [None]
  - NEOPLASM MALIGNANT [None]
  - URINARY TRACT INFECTION [None]
  - DENTAL CARIES [None]
  - TOOTH INFECTION [None]
  - TOOTH DISORDER [None]
  - PAIN IN EXTREMITY [None]
  - FISTULA [None]
  - DYSPHAGIA [None]
  - DIVERTICULUM INTESTINAL [None]
  - METASTASES TO SPINE [None]
  - ANAEMIA [None]
  - ASTHENIA [None]
  - BILE DUCT STONE [None]
  - DECUBITUS ULCER [None]
  - PAIN [None]
  - DEFORMITY [None]
  - ANHEDONIA [None]
  - BONE DISORDER [None]
  - PAPILLOMA [None]
  - ORAL CAVITY FISTULA [None]
  - FACE OEDEMA [None]
  - HYPOAESTHESIA [None]
  - BONE PAIN [None]
  - SPINAL OSTEOARTHRITIS [None]
